FAERS Safety Report 4967400-2 (Version None)
Quarter: 2006Q2

REPORT INFORMATION
  Report Type: 
  Country: None (occurrence: None)
  Receive Date: 20060407
  Receipt Date: 20060407
  Transmission Date: 20061013
  Serious: Yes (Hospitalization)
  Sender: FDA-Public Use
  Company Number: None

PATIENT
  Sex: Female
  Weight: 63.5 kg

DRUGS (1)
  1. BROMOCRIPTINE MESYLATE [Suspect]
     Dosage: 2.5 MG 1/2 TABLET DAILY ORAL
     Route: 048
     Dates: start: 20060328

REACTIONS (3)
  - CHEST PAIN [None]
  - FEELING ABNORMAL [None]
  - HEART RATE INCREASED [None]
